FAERS Safety Report 10443787 (Version 5)
Quarter: 2015Q1

REPORT INFORMATION
  Report Type: Spontaneous
  Country: US (occurrence: US)
  Receive Date: 20140910
  Receipt Date: 20150225
  Transmission Date: 20150720
  Serious: Yes (Other)
  Sender: FDA-Public Use
  Company Number: US-AMGEN-USASP2014055572

PATIENT
  Age: 44 Year
  Sex: Female

DRUGS (2)
  1. ENBREL [Suspect]
     Active Substance: ETANERCEPT
     Indication: RHEUMATOID ARTHRITIS
     Dosage: 50 MG, QWK
     Route: 065
     Dates: start: 20140429
  2. ENBREL [Suspect]
     Active Substance: ETANERCEPT
     Indication: ANKYLOSING SPONDYLITIS

REACTIONS (21)
  - Haematochezia [Recovered/Resolved]
  - Colitis [Unknown]
  - Pyrexia [Recovered/Resolved]
  - Device failure [Recovered/Resolved]
  - Headache [Not Recovered/Not Resolved]
  - Tooth infection [Recovered/Resolved]
  - Ankylosing spondylitis [Recovered/Resolved]
  - Back pain [Unknown]
  - Joint swelling [Unknown]
  - Tooth abscess [Recovered/Resolved]
  - Fatigue [Unknown]
  - Arthralgia [Unknown]
  - Platelet count abnormal [Not Recovered/Not Resolved]
  - Injection site pain [Not Recovered/Not Resolved]
  - White blood cell count decreased [Recovered/Resolved]
  - Increased tendency to bruise [Not Recovered/Not Resolved]
  - Impaired healing [Not Recovered/Not Resolved]
  - Diarrhoea [Recovered/Resolved]
  - Toothache [Recovered/Resolved]
  - Gait disturbance [Recovered/Resolved]
  - Gastroenteritis [Recovered/Resolved]

NARRATIVE: CASE EVENT DATE: 2014
